FAERS Safety Report 6433572-6 (Version None)
Quarter: 2009Q4

REPORT INFORMATION
  Report Type: 
  Country: None (occurrence: None)
  Receive Date: 20091106
  Receipt Date: 20091106
  Transmission Date: 20100525
  Serious: Yes (Life-Threatening)
  Sender: FDA-Public Use
  Company Number: None

PATIENT
  Age: 67 Year
  Sex: Female

DRUGS (1)
  1. ALENDRONATE SODIUM [Suspect]
     Indication: OSTEOPENIA
     Dosage: 70 MG 1 X PER WK ORAL
     Route: 048
     Dates: start: 20090827, end: 20090903

REACTIONS (1)
  - INTERNATIONAL NORMALISED RATIO ABNORMAL [None]
